FAERS Safety Report 21206698 (Version 2)
Quarter: 2022Q3

REPORT INFORMATION
  Report Type: Spontaneous
  Country: ES (occurrence: ES)
  Receive Date: 20220812
  Receipt Date: 20220818
  Transmission Date: 20221027
  Serious: Yes (Other)
  Sender: FDA-Public Use
  Company Number: ES-STADA-253865

PATIENT
  Age: 17 Year
  Sex: Male

DRUGS (4)
  1. PREDNISONE [Suspect]
     Active Substance: PREDNISONE
     Indication: Erythema nodosum
     Dosage: UNK
     Route: 048
  2. EVEROLIMUS [Suspect]
     Active Substance: EVEROLIMUS
     Indication: Astrocytoma, low grade
     Dosage: 7.5 MILLIGRAM, QD (LOWER THE DOSE OF EVEROLIMUS TO 7.5MG/DAY)
     Route: 065
  3. EVEROLIMUS [Suspect]
     Active Substance: EVEROLIMUS
     Dosage: 10 MILLIGRAM, QD (ONE MONTH BEFORE THE APPEARANCE OF THE LESION)
     Route: 065
  4. EVEROLIMUS [Suspect]
     Active Substance: EVEROLIMUS
     Dosage: 7.5 MILLIGRAM, QD (FOR TWO YEARS)
     Route: 065

REACTIONS (3)
  - Erythema nodosum [Unknown]
  - Condition aggravated [Recovered/Resolved]
  - Rebound effect [Unknown]
